FAERS Safety Report 6465621-3 (Version None)
Quarter: 2009Q4

REPORT INFORMATION
  Report Type: 
  Country: None (occurrence: None)
  Receive Date: 20091201
  Receipt Date: 20081104
  Transmission Date: 20100525
  Serious: No
  Sender: FDA-Public Use
  Company Number: US-AMGEN-KDL317338

PATIENT
  Sex: Male

DRUGS (6)
  1. ENBREL [Suspect]
     Indication: PSORIASIS
     Route: 058
     Dates: start: 20080604
  2. CRESTOR [Concomitant]
  3. ASPIRIN [Concomitant]
  4. TOPROL-XL [Concomitant]
  5. DIPROLENE [Concomitant]
  6. INFLUENZA VACCINE [Concomitant]
     Dates: start: 20081021

REACTIONS (3)
  - CHILLS [None]
  - PAIN [None]
  - PYREXIA [None]
